FAERS Safety Report 25593030 (Version 1)
Quarter: 2025Q3

REPORT INFORMATION
  Report Type: Spontaneous
  Country: US (occurrence: US)
  Receive Date: 20250722
  Receipt Date: 20250722
  Transmission Date: 20251021
  Serious: No
  Sender: SANOFI AVENTIS
  Company Number: US-SA-2025SA208296

PATIENT
  Age: 45 Year
  Sex: Female
  Weight: 86.36 kg

DRUGS (1)
  1. DUPIXENT [Suspect]
     Active Substance: DUPILUMAB
     Dosage: 300 MG, QOW
     Route: 058
     Dates: start: 2023

REACTIONS (5)
  - Photosensitivity reaction [Unknown]
  - Miliaria [Unknown]
  - Skin burning sensation [Unknown]
  - Blister [Unknown]
  - Skin warm [Unknown]

NARRATIVE: CASE EVENT DATE: 20250101
